FAERS Safety Report 7647146-2 (Version None)
Quarter: 2011Q3

REPORT INFORMATION
  Report Type: 
  Country: None (occurrence: None)
  Receive Date: 20110801
  Receipt Date: 20110721
  Transmission Date: 20111222
  Serious: Yes (Other)
  Sender: FDA-Public Use
  Company Number: US-ROCHE-735473

PATIENT
  Sex: Male
  Weight: 117.9 kg

DRUGS (2)
  1. ACCUTANE [Suspect]
     Route: 048
     Dates: end: 19960101
  2. ACCUTANE [Suspect]
     Indication: ACNE
     Dosage: FOR 3-6 MONTHS
     Route: 048
     Dates: start: 19910101, end: 19930101

REACTIONS (6)
  - GASTROINTESTINAL INJURY [None]
  - HYPERTENSION [None]
  - COLITIS ULCERATIVE [None]
  - ANAL ABSCESS [None]
  - ANXIETY [None]
  - INFLAMMATORY BOWEL DISEASE [None]
